FAERS Safety Report 17034889 (Version 1)
Quarter: 2019Q4

REPORT INFORMATION
  Report Type: Spontaneous
  Country: GB (occurrence: GB)
  Receive Date: 20191115
  Receipt Date: 20191115
  Transmission Date: 20200122
  Serious: Yes (Other)
  Sender: FDA-Public Use
  Company Number: GB-TEVA-2019-GB-1137229

PATIENT
  Age: 62 Year
  Sex: Female
  Weight: 95 kg

DRUGS (4)
  1. CEFALEXIN [Suspect]
     Active Substance: CEPHALEXIN
     Indication: ABDOMINAL PAIN LOWER
     Dosage: 5 DAY COURSE (1500 MG PER DAY)
     Dates: start: 20171019, end: 20171020
  2. METRONIDAZOLE. [Suspect]
     Active Substance: METRONIDAZOLE
     Indication: ABDOMINAL PAIN LOWER
     Dosage: 5 DAY COURSE (1200 MILLIGRAM PER DAY)
     Dates: start: 20171019, end: 20171020
  3. BRINZOLAMIDE [Concomitant]
     Active Substance: BRINZOLAMIDE
     Indication: OPTIC ATROPHY
  4. XALATAN [Concomitant]
     Active Substance: LATANOPROST
     Indication: OPTIC ATROPHY

REACTIONS (2)
  - Pruritus [Not Recovered/Not Resolved]
  - Rash papular [Not Recovered/Not Resolved]
